FAERS Safety Report 11343803 (Version 1)
Quarter: 2015Q3

REPORT INFORMATION
  Report Type: Spontaneous
  Country: US (occurrence: None)
  Receive Date: 20150804
  Receipt Date: 20150804
  Transmission Date: 20151125
  Serious: Yes (Hospitalization)
  Sender: FDA-Public Use
  Company Number: None

PATIENT
  Age: 72 Year
  Sex: Male
  Weight: 95 kg

DRUGS (1)
  1. ZOLEDRONIC [Suspect]
     Active Substance: ZOLEDRONIC ACID
     Indication: PLASMA CELL MYELOMA
     Dosage: OTHER
     Route: 042
     Dates: start: 20150615, end: 20150615

REACTIONS (8)
  - Arthralgia [None]
  - Chills [None]
  - Bone pain [None]
  - Atrial fibrillation [None]
  - Pyrexia [None]
  - Musculoskeletal stiffness [None]
  - Myalgia [None]
  - Palpitations [None]

NARRATIVE: CASE EVENT DATE: 20150616
